FAERS Safety Report 10271694 (Version 4)
Quarter: 2019Q3

REPORT INFORMATION
  Report Type: Report from Study
  Country: US (occurrence: US)
  Receive Date: 20140701
  Receipt Date: 20190708
  Transmission Date: 20191004
  Serious: Yes (Hospitalization, Other)
  Sender: FDA-Public Use
  Company Number: US-SA-2013SA134330

PATIENT
  Age: 58 Year
  Sex: Female

DRUGS (3)
  1. IMIGLUCERASE [Suspect]
     Active Substance: IMIGLUCERASE
     Dosage: 4000 DF, UNK (Q2)
     Route: 041
     Dates: start: 20161014
  2. ELIGLUSTAT. [Suspect]
     Active Substance: ELIGLUSTAT
     Indication: GAUCHER^S DISEASE TYPE I
     Dosage: UNK UNK,UNK
     Route: 048
     Dates: start: 20150406
  3. IMIGLUCERASE [Suspect]
     Active Substance: IMIGLUCERASE
     Indication: GAUCHER^S DISEASE
     Dosage: 3600 DF,QOW
     Route: 041

REACTIONS (12)
  - Malaise [Unknown]
  - Meniscus injury [Unknown]
  - Haemoglobin decreased [Unknown]
  - Pneumonia [Unknown]
  - Wrist fracture [Unknown]
  - Alopecia [Unknown]
  - Pneumothorax [Unknown]
  - Fatigue [Unknown]
  - White blood cell count increased [Unknown]
  - Weight increased [Unknown]
  - Nasopharyngitis [Unknown]
  - Fall [Unknown]
